FAERS Safety Report 17588630 (Version 4)
Quarter: 2020Q2

REPORT INFORMATION
  Report Type: Spontaneous
  Country: US (occurrence: US)
  Receive Date: 20200326
  Receipt Date: 20200430
  Transmission Date: 20200713
  Serious: No
  Sender: FDA-Public Use
  Company Number: US-BLUEPRINT MEDICINES CORPORATION-SP-US-2020-000225

PATIENT
  Age: 92 Year
  Sex: Female

DRUGS (1)
  1. AYVAKIT [Suspect]
     Active Substance: AVAPRITINIB
     Indication: GASTROINTESTINAL STROMAL TUMOUR
     Route: 048
     Dates: start: 20200205

REACTIONS (5)
  - Medical device implantation [Recovered/Resolved]
  - Peripheral swelling [Unknown]
  - Decreased appetite [Recovered/Resolved]
  - Swelling face [Unknown]
  - Nausea [Recovered/Resolved]
